FAERS Safety Report 11109634 (Version 1)
Quarter: 2015Q2

REPORT INFORMATION
  Report Type: Spontaneous
  Country: US (occurrence: None)
  Receive Date: 20150512
  Receipt Date: 20150512
  Transmission Date: 20150821
  Serious: Yes (Other)
  Sender: FDA-Public Use
  Company Number: None

PATIENT
  Age: 45 Year
  Sex: Female
  Weight: 98.88 kg

DRUGS (15)
  1. LOSARTAN [Concomitant]
     Active Substance: LOSARTAN
  2. TANZEUM [Suspect]
     Active Substance: ALBIGLUTIDE
     Indication: TYPE 2 DIABETES MELLITUS
     Route: 058
     Dates: start: 20150428, end: 20150504
  3. ESCITALOPRAM [Concomitant]
     Active Substance: ESCITALOPRAM OXALATE
  4. METFORMIN [Concomitant]
     Active Substance: METFORMIN HYDROCHLORIDE
  5. TOPICAL CREAM [Concomitant]
     Active Substance: UNSPECIFIED INGREDIENT
  6. ATORVASTATIN [Concomitant]
     Active Substance: ATORVASTATIN
  7. HYDROCHLOROTHIAZIDE. [Concomitant]
     Active Substance: HYDROCHLOROTHIAZIDE
  8. TRIAMCINOLONE ACETONIDE. [Concomitant]
     Active Substance: TRIAMCINOLONE ACETONIDE
  9. ASPIR LOW [Concomitant]
     Active Substance: ASPIRIN
  10. VITAMIN D3 [Concomitant]
     Active Substance: CHOLECALCIFEROL
  11. VITAMIN B12 [Concomitant]
     Active Substance: CYANOCOBALAMIN
  12. TANZEUM [Concomitant]
     Active Substance: ALBIGLUTIDE
  13. B-COMPLEX-VITAMIN [Concomitant]
  14. MELOXICAM. [Concomitant]
     Active Substance: MELOXICAM
  15. COENZYME Q10 [Concomitant]
     Active Substance: UBIDECARENONE

REACTIONS (5)
  - Injection site reaction [None]
  - Skin tightness [None]
  - Injection site pruritus [None]
  - Cellulitis [None]
  - Injection site erythema [None]

NARRATIVE: CASE EVENT DATE: 20150511
